FAERS Safety Report 6050181-1 (Version None)
Quarter: 2009Q1

REPORT INFORMATION
  Report Type: 
  Country: None (occurrence: None)
  Receive Date: 20090126
  Receipt Date: 20090119
  Transmission Date: 20090719
  Serious: Yes (Hospitalization)
  Sender: FDA-Public Use
  Company Number: US-CELGENEUS-163-20785-08101761

PATIENT
  Sex: Male

DRUGS (1)
  1. THALOMID [Suspect]
     Indication: NEOPLASM
     Route: 048
     Dates: start: 20070920, end: 20071001

REACTIONS (1)
  - PATHOLOGICAL FRACTURE [None]
